FAERS Safety Report 24165733 (Version 3)
Quarter: 2024Q3

REPORT INFORMATION
  Report Type: Report from Study
  Country: CA (occurrence: CA)
  Receive Date: 20240802
  Receipt Date: 20240926
  Transmission Date: 20241017
  Serious: Yes (Hospitalization, Other)
  Sender: HLS THERAPEUTICS
  Company Number: CA-HLS-202401799

PATIENT
  Age: 58 Year
  Sex: Male

DRUGS (1)
  1. CLOZARIL [Suspect]
     Active Substance: CLOZAPINE
     Indication: Schizophrenia
     Dosage: 100 MG
     Route: 048
     Dates: start: 20070613

REACTIONS (8)
  - Loss of personal independence in daily activities [Recovered/Resolved]
  - Cough [Unknown]
  - Dyspnoea [Unknown]
  - Fall [Recovered/Resolved]
  - Haemoglobin decreased [Unknown]
  - Oedema peripheral [Unknown]
  - Mean cell haemoglobin concentration decreased [Unknown]
  - Monocyte count increased [Unknown]

NARRATIVE: CASE EVENT DATE: 20240718
